FAERS Safety Report 8519178-3 (Version None)
Quarter: 2012Q3

REPORT INFORMATION
  Report Type: 
  Country: None (occurrence: None)
  Receive Date: 20120718
  Receipt Date: 20120711
  Transmission Date: 20120928
  Serious: Yes (Hospitalization)
  Sender: FDA-Public Use
  Company Number: US-ALEXION-A201201143

PATIENT
  Sex: Male
  Weight: 77.1 kg

DRUGS (25)
  1. SOLIRIS [Suspect]
     Dosage: 600 MG, QW
     Route: 042
     Dates: start: 20110714, end: 20110811
  2. LIDOCAINE HCL VISCOUS [Concomitant]
     Indication: MOUTH ULCERATION
     Dosage: 5 ML, PRN SWISH AND DISCARD
     Route: 048
  3. TYLENOL [Concomitant]
     Dosage: 650 MG, PRN Q4H (325 MG 2 TABS)
  4. LASIX [Concomitant]
     Indication: OEDEMA PERIPHERAL
     Dosage: 40 MG, QD
     Route: 048
  5. TRIAMCINOLONE [Concomitant]
     Dosage: 0.1% TID DENTAL PASTE
     Route: 048
  6. VITAMIN B-12 [Concomitant]
     Indication: VITAMIN SUPPLEMENTATION
     Dosage: 1000 ?G, QD
     Route: 048
  7. COMBIVENT [Concomitant]
     Dosage: UNK PRN
  8. SOLIRIS [Suspect]
     Indication: PAROXYSMAL NOCTURNAL HAEMOGLOBINURIA
     Dosage: 900 MG, Q2W
     Route: 042
     Dates: start: 20110811
  9. ASPIRIN [Concomitant]
     Indication: HYPERTENSION
     Dosage: 325 MG, QD
     Route: 048
  10. METOPROLOL SUCCINATE [Concomitant]
     Indication: HYPERTENSION
     Dosage: 50 MG, QD
     Route: 048
  11. AVASTIN [Suspect]
     Indication: MEDICATION ERROR
     Dosage: APPROXIMATELY 900 ML INFUSED
     Route: 042
     Dates: start: 20120607, end: 20120607
  12. TRIAMCINOLONE [Concomitant]
     Dosage: 0.1% CREAM TO LEFT SIDE OF NECK PRN
     Route: 061
  13. POTASSIUM CHLORIDE [Concomitant]
     Indication: SUPPLEMENTATION THERAPY
     Dosage: 20 MEQ, QD
     Route: 048
  14. FOLIC ACID [Concomitant]
     Indication: VITAMIN SUPPLEMENTATION
     Dosage: 1000 ?G X3, QD
     Route: 048
  15. ADVAIR DISKUS 100/50 [Concomitant]
     Indication: DYSPNOEA
     Dosage: 250/50 BID 2 PUFFS BID
  16. OXYGEN [Concomitant]
     Dosage: UNK BIPAP NIGHTLY
  17. VITAMIN B6 [Concomitant]
     Indication: VITAMIN SUPPLEMENTATION
     Dosage: 200 MG, QD
     Route: 048
  18. ALBUTEROL SULFATE AND IPRATROPIUM BROMIDE [Concomitant]
     Indication: DYSPNOEA
     Dosage: ALBUTEROL 3MG W/IPRATROPIUM 0.5MG QID
  19. OMEGA [Concomitant]
     Dosage: 1 CAPSULE DAILY
  20. KELP [Concomitant]
     Dosage: 1 TAB DAILY
  21. DUONEB [Concomitant]
     Dosage: UNK NEBULIZER QID
  22. RAMIPRIL [Concomitant]
     Indication: HYPERTENSION
     Dosage: 5 MG, QD
     Route: 048
  23. GAS RELIEF [Concomitant]
     Dosage: UNK CHEWABLE PRN
  24. EMLA [Concomitant]
     Indication: PREMEDICATION
     Dosage: UNK CREAM
  25. MUCINEX [Concomitant]
     Dosage: 2 TABS DAILY

REACTIONS (5)
  - CARDIAC FAILURE CONGESTIVE [None]
  - CHRONIC OBSTRUCTIVE PULMONARY DISEASE [None]
  - ANAEMIA [None]
  - NIGHT SWEATS [None]
  - MEDICATION ERROR [None]
